FAERS Safety Report 7793654-3 (Version None)
Quarter: 2011Q4

REPORT INFORMATION
  Report Type: 
  Country: None (occurrence: None)
  Receive Date: 20111003
  Receipt Date: 20110926
  Transmission Date: 20120403
  Serious: Yes (Life-Threatening, Hospitalization)
  Sender: FDA-Public Use
  Company Number: PHHY2011ES85193

PATIENT
  Age: 84 Year
  Sex: Male

DRUGS (2)
  1. SINTROM [Interacting]
     Indication: CARDIAC VALVE PROSTHESIS USER
     Dosage: 4 MG, UNK
     Dates: end: 20110713
  2. IBUPROFEN [Suspect]
     Indication: BACK PAIN
     Route: 048
     Dates: start: 20110704, end: 20110712

REACTIONS (6)
  - GASTRIC ULCER [None]
  - GASTROINTESTINAL HAEMORRHAGE [None]
  - MELAENA [None]
  - MUCOSAL DISCOLOURATION [None]
  - DRUG INTERACTION [None]
  - DUODENITIS [None]
